FAERS Safety Report 13891116 (Version 2)
Quarter: 2017Q3

REPORT INFORMATION
  Report Type: Spontaneous
  Country: DE (occurrence: DE)
  Receive Date: 20170822
  Receipt Date: 20170825
  Transmission Date: 20171127
  Serious: Yes (Life-Threatening, Hospitalization, Other)
  Sender: FDA-Public Use
  Company Number: DE-PFIZER INC-2017324363

PATIENT
  Age: 65 Year
  Sex: Male
  Weight: 77 kg

DRUGS (5)
  1. FASTJEKT [Suspect]
     Active Substance: EPINEPHRINE
     Indication: ANAPHYLACTIC SHOCK
     Dosage: UNK
     Route: 030
     Dates: start: 20170705
  2. GANFORT [Interacting]
     Active Substance: BIMATOPROST\TIMOLOL
     Indication: GLAUCOMA
     Dosage: 1 DROP BILATERAL ONCE EARLY
     Dates: start: 201309
  3. PILOMANN [Concomitant]
     Indication: GLAUCOMA
     Dosage: 1 DROP, 1 GTT, QD IN THE EVENING
     Dates: start: 201603
  4. TRUSOPT [Concomitant]
     Active Substance: DORZOLAMIDE HYDROCHLORIDE
     Indication: GLAUCOMA
     Dosage: 1 DROP, 1 GTT, QD, 7AM, 3PM, 11PM.
     Dates: start: 201703
  5. ALOC 300 [Concomitant]
     Indication: GOUT
     Dosage: 1 DF, QD IN THE MORNING
     Dates: start: 201609

REACTIONS (5)
  - Drug ineffective [Recovered/Resolved]
  - Device issue [Unknown]
  - Product storage error [Unknown]
  - Inhibitory drug interaction [Unknown]
  - Anaphylactic shock [Recovered/Resolved]

NARRATIVE: CASE EVENT DATE: 20170705
